FAERS Safety Report 5991101-5 (Version None)
Quarter: 2008Q4

REPORT INFORMATION
  Report Type: 
  Country: None (occurrence: None)
  Receive Date: 20081211
  Receipt Date: 20081201
  Transmission Date: 20090506
  Serious: Yes (Life-Threatening, Hospitalization)
  Sender: FDA-Public Use
  Company Number: FR-TYCO HEALTHCARE/MALLINCKRODT-T200802062

PATIENT

DRUGS (1)
  1. HEXABRIX [Suspect]
     Indication: ARTHROGRAM
     Dosage: 2 VIALS OF 10 ML
     Route: 014
     Dates: start: 20081201, end: 20081201

REACTIONS (5)
  - CONJUNCTIVITIS [None]
  - ERYTHEMA [None]
  - FACE OEDEMA [None]
  - LARYNGEAL OEDEMA [None]
  - RHINITIS [None]
